FAERS Safety Report 25219554 (Version 3)
Quarter: 2025Q2

REPORT INFORMATION
  Report Type: Report from Study
  Country: US (occurrence: US)
  Receive Date: 20250421
  Receipt Date: 20250620
  Transmission Date: 20250716
  Serious: Yes (Hospitalization)
  Sender: NOVARTIS
  Company Number: US-002147023-NVSC2025US028675

PATIENT
  Age: 48 Year
  Sex: Female

DRUGS (11)
  1. KESIMPTA [Suspect]
     Active Substance: OFATUMUMAB
     Indication: Multiple sclerosis
     Dosage: 20 MG, QMO (1ST INJECTION ON 2/14)
     Route: 058
  2. KESIMPTA [Suspect]
     Active Substance: OFATUMUMAB
     Route: 065
     Dates: start: 20250228
  3. KESIMPTA [Suspect]
     Active Substance: OFATUMUMAB
     Route: 058
  4. KESIMPTA [Suspect]
     Active Substance: OFATUMUMAB
     Dosage: 20 MG, QMO
     Route: 058
     Dates: start: 20250314
  5. FOLIC ACID [Concomitant]
     Active Substance: FOLIC ACID
     Indication: Product used for unknown indication
     Route: 065
  6. ACETAMINOPHEN\HYDROCODONE [Concomitant]
     Active Substance: ACETAMINOPHEN\HYDROCODONE
     Indication: Product used for unknown indication
     Route: 065
  7. BUSPIRONE HYDROCHLORIDE [Concomitant]
     Active Substance: BUSPIRONE HYDROCHLORIDE
     Indication: Product used for unknown indication
     Route: 065
  8. COLLAGEN [Concomitant]
     Active Substance: COLLAGEN
     Indication: Product used for unknown indication
     Route: 065
  9. VITAMINS [Concomitant]
     Active Substance: VITAMINS
     Indication: Product used for unknown indication
     Route: 065
  10. CALCITRIOL [Concomitant]
     Active Substance: CALCITRIOL
     Indication: Product used for unknown indication
     Route: 065
  11. B12 [Concomitant]
     Indication: Product used for unknown indication
     Route: 065

REACTIONS (15)
  - Pulmonary thrombosis [Unknown]
  - Cardiac ventricular thrombosis [Unknown]
  - Decreased appetite [Unknown]
  - Hiccups [Unknown]
  - Fatigue [Unknown]
  - Bladder disorder [Unknown]
  - Pollakiuria [Unknown]
  - Urine output decreased [Unknown]
  - Concomitant disease aggravated [Unknown]
  - Injection site bruising [Unknown]
  - Ageusia [Unknown]
  - Anosmia [Unknown]
  - Gait disturbance [Unknown]
  - Weight decreased [Unknown]
  - Drug effect less than expected [Unknown]

NARRATIVE: CASE EVENT DATE: 20250228
